FAERS Safety Report 5910159-2 (Version None)
Quarter: 2008Q4

REPORT INFORMATION
  Report Type: 
  Country: None (occurrence: None)
  Receive Date: 20081007
  Receipt Date: 20071018
  Transmission Date: 20090506
  Serious: No
  Sender: FDA-Public Use
  Company Number: US-ASTRAZENECA-2007UW22147

PATIENT
  Age: 81 Year
  Sex: Female
  Weight: 63.5 kg

DRUGS (14)
  1. ARIMIDEX [Suspect]
     Indication: BREAST CANCER STAGE I
     Route: 048
     Dates: start: 20050218, end: 20070921
  2. TAMOXIFEN CITRATE [Suspect]
     Indication: BREAST CANCER IN SITU
     Route: 048
     Dates: start: 20020101
  3. TRIAMTERENE [Concomitant]
  4. ZOCOR [Concomitant]
  5. ZETIA [Concomitant]
  6. CALCIUM WITH VITAMIN D [Concomitant]
  7. ASPIRIN [Concomitant]
  8. CENTRUM [Concomitant]
  9. VITAMINS [Concomitant]
  10. LOVAZA [Concomitant]
  11. ASCORBIC ACID [Concomitant]
  12. GLUCOSAMINE [Concomitant]
  13. CHONDROITIN W/MSM [Concomitant]
  14. ZOLOFT [Concomitant]

REACTIONS (10)
  - ALOPECIA [None]
  - ARTHRALGIA [None]
  - BACK PAIN [None]
  - HEADACHE [None]
  - HOT FLUSH [None]
  - INSOMNIA [None]
  - MYALGIA [None]
  - PAIN [None]
  - PAIN IN EXTREMITY [None]
  - SNEEZING [None]
